FAERS Safety Report 17830619 (Version 1)
Quarter: 2020Q2

REPORT INFORMATION
  Report Type: Spontaneous
  Country: US (occurrence: US)
  Receive Date: 20200527
  Receipt Date: 20200527
  Transmission Date: 20200714
  Serious: No
  Sender: FDA-Public Use
  Company Number: US-PFIZER INC-2018297635

PATIENT
  Age: 65 Year
  Sex: Female
  Weight: 82 kg

DRUGS (3)
  1. LYRICA [Suspect]
     Active Substance: PREGABALIN
     Indication: INTERVERTEBRAL DISC DEGENERATION
     Dosage: 75 MG, 2X/DAY (TWICE DAILY; ONE IN THE MORNING, ONE AT NIGHT)
     Route: 048
     Dates: start: 201806, end: 20180710
  2. LYRICA [Suspect]
     Active Substance: PREGABALIN
     Indication: BACK PAIN
     Dosage: 75 MG, 1X/DAY (1 CAPSULE, ONCE DAILY AT NIGHT)
     Route: 048
     Dates: start: 20180710
  3. LYRICA [Suspect]
     Active Substance: PREGABALIN
     Indication: NEURALGIA
     Dosage: 150 MG, 2X/DAY

REACTIONS (4)
  - Herpes zoster [Unknown]
  - Intentional product use issue [Unknown]
  - Pain [Unknown]
  - Weight abnormal [Unknown]

NARRATIVE: CASE EVENT DATE: 20180710
